FAERS Safety Report 21103217 (Version 5)
Quarter: 2022Q4

REPORT INFORMATION
  Report Type: Report from Study
  Country: US (occurrence: US)
  Receive Date: 20220720
  Receipt Date: 20221027
  Transmission Date: 20230113
  Serious: Yes (Other)
  Sender: FDA-Public Use
  Company Number: NVSC2022US163447

PATIENT
  Age: 78 Year
  Sex: Female

DRUGS (1)
  1. MAYZENT [Suspect]
     Active Substance: SIPONIMOD
     Indication: Multiple sclerosis
     Dosage: 0.25 MG, QD
     Route: 048
     Dates: start: 20220716

REACTIONS (3)
  - Multiple sclerosis [Unknown]
  - Speech disorder [Unknown]
  - Somnolence [Recovered/Resolved]

NARRATIVE: CASE EVENT DATE: 20220716
